FAERS Safety Report 25515482 (Version 2)
Quarter: 2025Q3

REPORT INFORMATION
  Report Type: Spontaneous
  Country: EU (occurrence: EU)
  Receive Date: 20250704
  Receipt Date: 20250709
  Transmission Date: 20251021
  Serious: Yes (Death, Hospitalization, Other)
  Sender: CELLTRION
  Company Number: None

PATIENT

DRUGS (2)
  1. TRASTUZUMAB [Suspect]
     Active Substance: TRASTUZUMAB
     Indication: Breast cancer
     Route: 042
     Dates: start: 20240916, end: 20241126
  2. PACLITAXEL [Suspect]
     Active Substance: PACLITAXEL
     Indication: Breast cancer
     Route: 042
     Dates: start: 20240916, end: 20241126

REACTIONS (5)
  - Acute respiratory distress syndrome [Fatal]
  - Dyspnoea [Fatal]
  - Asthenia [Fatal]
  - Pyrexia [Fatal]
  - Cough [Fatal]

NARRATIVE: CASE EVENT DATE: 20241201
